FAERS Safety Report 12544415 (Version 3)
Quarter: 2016Q3

REPORT INFORMATION
  Report Type: Spontaneous
  Country: US (occurrence: US)
  Receive Date: 20160711
  Receipt Date: 20160805
  Transmission Date: 20161109
  Serious: No
  Sender: FDA-Public Use
  Company Number: US-PFIZER INC-2016296998

PATIENT
  Age: 66 Year
  Sex: Female
  Weight: 74 kg

DRUGS (10)
  1. ACUPRIL [Concomitant]
     Indication: HYPERTENSION
     Dosage: 20 MG, 2X/DAY
  2. CETIRIZINE/PSEUDOEPHEDRINE [Concomitant]
     Dosage: 1 DF, DAILY
     Route: 048
  3. IBRANCE [Suspect]
     Active Substance: PALBOCICLIB
     Indication: BREAST CANCER FEMALE
     Dosage: 125 MG, CYCLIC, ^ONE EVERY DAY FOR 21 DAYS, THEN OFF 7 DAYS^
     Route: 048
     Dates: start: 201506
  4. LETROZOLE. [Concomitant]
     Active Substance: LETROZOLE
     Indication: BREAST CANCER
     Dosage: 2.5 MG, 1X/DAY (TOOK BEFORE SIX YEARS AGO BY ITSELF, THEN STARTED IT AGAIN WITH THE IBRANCE)
     Route: 048
     Dates: start: 201507
  5. RABEPRAZOLE [Concomitant]
     Active Substance: RABEPRAZOLE
     Indication: GASTROOESOPHAGEAL REFLUX DISEASE
     Dosage: 20 MG, 2X/DAY (DELAYED RELEASE (DR/EC) 1 TABLET, ENTERIC COATED PO BID)
     Route: 048
  6. PAXIL [Concomitant]
     Active Substance: PAROXETINE HYDROCHLORIDE
     Indication: ANXIETY
     Dosage: 20 MG, DAILY
  7. QUINAPRIL. [Concomitant]
     Active Substance: QUINAPRIL
     Dosage: 20 MG, 2X/DAY
     Route: 048
  8. ASPIRIN. [Concomitant]
     Active Substance: ASPIRIN
     Dosage: 81 MG, DAILY
     Route: 048
  9. CALTRATE 600+D [Concomitant]
     Dosage: 1 DF, DAILY (PO SOLID (CALCIUM CARBONATE/VITAMIN D3) 1 TABLET(S) CHEWABLE PO DAILY, IN CLINIC)
     Route: 048
  10. PAROXETINE. [Concomitant]
     Active Substance: PAROXETINE
     Dosage: 20 MG, DAILY
     Route: 048

REACTIONS (3)
  - Diplopia [Recovered/Resolved]
  - White blood cell count decreased [Unknown]
  - Vision blurred [Unknown]

NARRATIVE: CASE EVENT DATE: 2015
